FAERS Safety Report 17205111 (Version 2)
Quarter: 2020Q1

REPORT INFORMATION
  Report Type: Spontaneous
  Country: US (occurrence: US)
  Receive Date: 20191227
  Receipt Date: 20200110
  Transmission Date: 20200409
  Serious: No
  Sender: FDA-Public Use
  Company Number: US-JNJFOC-20191228013

PATIENT
  Sex: Female

DRUGS (1)
  1. WOMENS ROGAINE UNSCENTED [Suspect]
     Active Substance: MINOXIDIL
     Indication: ALOPECIA
     Dosage: LESS THAN A HALF CAPFUL ONCE DAY USUALLY, BUT WHEN STARTED NOTICING THAT DID NOT LIKE THE TEXTURE, S
     Route: 061
     Dates: end: 20191214

REACTIONS (3)
  - Underdose [Unknown]
  - Alopecia [Not Recovered/Not Resolved]
  - Product physical issue [Unknown]
